FAERS Safety Report 9526757 (Version 2)
Quarter: 2013Q3

REPORT INFORMATION
  Report Type: Report from Study
  Country: KP (occurrence: KP)
  Receive Date: 20130916
  Receipt Date: 20130918
  Transmission Date: 20140515
  Serious: Yes (Death)
  Sender: FDA-Public Use
  Company Number: KP-ROCHE-1275700

PATIENT
  Age: 79 Year
  Sex: Female
  Weight: 49 kg

DRUGS (7)
  1. CAPECITABINE [Suspect]
     Indication: GASTRIC CANCER
     Route: 048
     Dates: start: 20130513, end: 20130901
  2. CAPECITABINE [Suspect]
     Route: 065
     Dates: start: 20130624
  3. CAPECITABINE [Suspect]
     Route: 065
     Dates: start: 20130716
  4. CAPECITABINE [Suspect]
     Route: 065
     Dates: start: 20130826
  5. CORYDALIS TUBER [Concomitant]
     Dosage: 3 TABLETS
     Route: 065
     Dates: start: 20130819
  6. CODEINE PHOSPHATE/IBUPROFEN [Concomitant]
     Route: 065
     Dates: start: 20130819
  7. EUPATILIN [Concomitant]
     Route: 065
     Dates: start: 20130819

REACTIONS (1)
  - Infection [Fatal]
